FAERS Safety Report 25376517 (Version 1)
Quarter: 2025Q2

REPORT INFORMATION
  Report Type: Spontaneous
  Country: US (occurrence: US)
  Receive Date: 20250530
  Receipt Date: 20250530
  Transmission Date: 20250717
  Serious: No
  Sender: ABBVIE
  Company Number: US-ABBVIE-6300222

PATIENT
  Age: 79 Year
  Sex: Male
  Weight: 108.86 kg

DRUGS (2)
  1. FML FORTE [Suspect]
     Active Substance: FLUOROMETHOLONE
     Indication: Corneal transplant
     Dosage: 1 DROP ON THE RIGHT EYE AT NIGHT.
     Route: 047
     Dates: start: 202505, end: 202505
  2. FML FORTE [Suspect]
     Active Substance: FLUOROMETHOLONE
     Route: 047
     Dates: start: 2020

REACTIONS (2)
  - Eye pain [Recovered/Resolved]
  - Eye irritation [Recovered/Resolved]

NARRATIVE: CASE EVENT DATE: 20250501
